FAERS Safety Report 4605197-6 (Version None)
Quarter: 2005Q1

REPORT INFORMATION
  Report Type: 
  Country: None (occurrence: None)
  Receive Date: 20050310
  Receipt Date: 20050310
  Transmission Date: 20050727
  Serious: Yes (Hospitalization)
  Sender: FDA-Public Use
  Company Number: None

PATIENT
  Sex: Male
  Weight: 46.2669 kg

DRUGS (4)
  1. DOXORUBICIN [Suspect]
     Indication: PROSTATE CANCER
     Dosage: Q WEEK X 3 WEEKS IV   15 MG/M2  HIGH DOSE 50 MG/M2
     Route: 042
     Dates: start: 20041129, end: 20050301
  2. TAXOTERE [Suspect]
     Indication: PROSTATE CANCER
     Dosage: Q WEEK X 3 WEEKS IV  HIGH DOSE: 70 MG/M2
     Route: 042
     Dates: start: 20041129, end: 20050301
  3. HYDROCHLOROTHIAZIDE [Concomitant]
  4. VITAMIN B6 [Concomitant]

REACTIONS (7)
  - COUGH [None]
  - DIARRHOEA [None]
  - DYSURIA [None]
  - FEBRILE NEUTROPENIA [None]
  - MUCOSAL INFLAMMATION [None]
  - PHARYNGOLARYNGEAL PAIN [None]
  - RHINORRHOEA [None]
